FAERS Safety Report 9157969 (Version 1)
Quarter: 2013Q1

REPORT INFORMATION
  Report Type: Spontaneous
  Country: US (occurrence: None)
  Receive Date: 20130204
  Receipt Date: 20130204
  Transmission Date: 20140127
  Serious: Yes (Hospitalization, Other)
  Sender: FDA-Public Use
  Company Number: IPC201301-000014

PATIENT
  Age: 61 Year
  Sex: Female

DRUGS (6)
  1. METOPROLOL TARTRATE [Suspect]
  2. LEVOFLOXACIN (LEVOFLOXACIN) [Suspect]
     Indication: ARTHRITIS BACTERIAL
  3. CEFEPIME (CEFEPIME) [Suspect]
     Indication: ARTHRITIS BACTERIAL
  4. TACROLIMUS [Suspect]
  5. COUMADIN (COUMADIN) [Suspect]
  6. DOCUSATE SODIUM [Suspect]

REACTIONS (1)
  - Pseudolymphoma [None]
